FAERS Safety Report 10327373 (Version 1)
Quarter: 2014Q3

REPORT INFORMATION
  Report Type: Report from Study
  Country: GB (occurrence: GB)
  Receive Date: 20140721
  Receipt Date: 20140721
  Transmission Date: 20150326
  Serious: Yes (Death)
  Sender: FDA-Public Use
  Company Number: GB-ROCHE-1437303

PATIENT
  Age: 58 Year
  Sex: Female

DRUGS (8)
  1. DEXAMETHASONE. [Concomitant]
     Active Substance: DEXAMETHASONE
     Indication: GASTRIC CANCER
     Route: 048
     Dates: end: 20130328
  2. LOPERAMIDE [Concomitant]
     Active Substance: LOPERAMIDE
     Indication: GASTRIC CANCER
     Route: 048
     Dates: end: 20130328
  3. OXALIPLATIN. [Concomitant]
     Active Substance: OXALIPLATIN
     Indication: GASTRIC CANCER
     Route: 042
     Dates: end: 20130328
  4. DOMPERIDONE [Concomitant]
     Active Substance: DOMPERIDONE
     Indication: GASTRIC CANCER
     Route: 048
     Dates: end: 20130328
  5. ONDANSETRON [Concomitant]
     Active Substance: ONDANSETRON
     Indication: GASTRIC CANCER
     Route: 048
     Dates: end: 20130328
  6. CAPECITABINE [Suspect]
     Active Substance: CAPECITABINE
     Indication: GASTRIC CANCER
     Route: 048
     Dates: end: 20130328
  7. DEXAMETHASONE. [Concomitant]
     Active Substance: DEXAMETHASONE
     Route: 048
     Dates: end: 20130328
  8. GLUCOSE 5% [Concomitant]
     Active Substance: DEXTROSE
     Indication: GASTRIC CANCER
     Route: 042
     Dates: end: 20130328

REACTIONS (1)
  - Death [Fatal]
